FAERS Safety Report 9527531 (Version 1)
Quarter: 2013Q3

REPORT INFORMATION
  Report Type: Spontaneous
  Country: US (occurrence: None)
  Receive Date: 20130913
  Receipt Date: 20130913
  Transmission Date: 20140515
  Serious: Yes (Other)
  Sender: FDA-Public Use
  Company Number: DEP_01046_2013

PATIENT
  Age: 38 Year
  Sex: Female
  Weight: 82.56 kg

DRUGS (7)
  1. GRALISE [Suspect]
     Indication: NERVOUS SYSTEM DISORDER
     Dosage: SAMPLE PACK
     Route: 048
     Dates: start: 20130826, end: 20130831
  2. GRALISE [Suspect]
     Indication: HYPOAESTHESIA
     Dosage: SAMPLE PACK
     Route: 048
     Dates: start: 20130826, end: 20130831
  3. GRALISE [Suspect]
     Indication: TINNITUS
     Dosage: SAMPLE PACK
     Route: 048
     Dates: start: 20130826, end: 20130831
  4. GRALISE [Suspect]
     Indication: OFF LABEL USE
     Dosage: SAMPLE PACK
     Route: 048
     Dates: start: 20130826, end: 20130831
  5. VITAMINS NOS (UNKNOWN) [Concomitant]
  6. DIAZEPAM [Concomitant]
  7. MOTRIN (UNKNOWN) [Concomitant]

REACTIONS (6)
  - Panic reaction [None]
  - Dizziness [None]
  - Urinary tract infection [None]
  - Speech disorder [None]
  - Feeling of despair [None]
  - Emotional disorder [None]
